FAERS Safety Report 21499792 (Version 6)
Quarter: 2023Q4

REPORT INFORMATION
  Report Type: Spontaneous
  Country: CA (occurrence: CA)
  Receive Date: 20221024
  Receipt Date: 20231211
  Transmission Date: 20240110
  Serious: Yes (Hospitalization, Other)
  Sender: FDA-Public Use
  Company Number: CA-PFIZER INC-202201245652

PATIENT
  Age: 50 Year
  Sex: Female
  Weight: 66 kg

DRUGS (6)
  1. ABRILADA [Suspect]
     Active Substance: ADALIMUMAB-AFZB
     Indication: Crohn^s disease
     Dosage: 40 MG, EVERY 14 DAY, PREFILLED PEN
     Route: 058
     Dates: start: 20220517, end: 2023
  2. DIAZEPAM [Concomitant]
     Active Substance: DIAZEPAM
     Dosage: 1 DF
  3. METHOTREXATE [Concomitant]
     Active Substance: METHOTREXATE
     Dosage: 10 MG, WEEKLY
     Route: 065
     Dates: start: 2016
  4. RABEPRAZOLE SODIUM [Concomitant]
     Active Substance: RABEPRAZOLE SODIUM
     Dosage: 1 DF
  5. RISPERDAL [Concomitant]
     Active Substance: RISPERIDONE
     Dosage: 1 DF
  6. SEROQUEL [Concomitant]
     Active Substance: QUETIAPINE FUMARATE
     Dosage: 1 DF

REACTIONS (4)
  - Renal failure [Unknown]
  - Blood potassium decreased [Unknown]
  - Blood creatine abnormal [Unknown]
  - Tubulointerstitial nephritis [Not Recovered/Not Resolved]

NARRATIVE: CASE EVENT DATE: 20220101
